FAERS Safety Report 15542098 (Version 1)
Quarter: 2018Q4

REPORT INFORMATION
  Report Type: Spontaneous
  Country: US (occurrence: US)
  Receive Date: 20181023
  Receipt Date: 20181023
  Transmission Date: 20190205
  Serious: Yes (Life-Threatening, Other)
  Sender: FDA-Public Use
  Company Number: US-MACLEODS PHARMACEUTICALS US LTD-MAC2017004344

PATIENT

DRUGS (2)
  1. METFORMIN HYDROCHLORIDE. [Suspect]
     Active Substance: METFORMIN HYDROCHLORIDE
     Indication: TYPE 2 DIABETES MELLITUS
     Dosage: UNK
     Route: 065
  2. TRIAMCINOLONE 0.1% [Concomitant]
     Active Substance: TRIAMCINOLONE
     Indication: PSORIASIS
     Dosage: 0.1 %, UNK
     Route: 061

REACTIONS (14)
  - Bacterial infection [Recovering/Resolving]
  - Skin haemorrhage [Recovering/Resolving]
  - Drug reaction with eosinophilia and systemic symptoms [Recovering/Resolving]
  - Lymphadenopathy [Recovered/Resolved]
  - Onycholysis [Recovering/Resolving]
  - Purulent discharge [Recovered/Resolved]
  - Rash papular [Recovered/Resolved]
  - Exfoliative rash [Recovered/Resolved]
  - Fatigue [Recovering/Resolving]
  - Condition aggravated [Recovered/Resolved]
  - Skin plaque [Recovering/Resolving]
  - Skin hyperpigmentation [Recovering/Resolving]
  - Eosinophilia [Recovering/Resolving]
  - Rash pruritic [Recovered/Resolved]
